FAERS Safety Report 10370258 (Version 1)
Quarter: 2014Q3

REPORT INFORMATION
  Report Type: Spontaneous
  Country: US (occurrence: None)
  Receive Date: 20140805
  Receipt Date: 20140805
  Transmission Date: 20150326
  Serious: Yes (Other)
  Sender: FDA-Public Use
  Company Number: KAD201407-000819

PATIENT
  Age: 54 Year
  Sex: Female

DRUGS (2)
  1. RIBASPHERE RIBAPAK [Suspect]
     Active Substance: RIBAVIRIN
     Indication: HEPATITIS C
     Dosage: 1000 MG DAILY (600 MG AM, 400MG PM) ORAL
     Route: 048
     Dates: start: 20140607
  2. SOVALDI [Suspect]
     Active Substance: SOFOSBUVIR
     Indication: HEPATITIS C
     Dosage: TABLET, 400MG DAILY, ORAL
     Route: 048
     Dates: start: 20140607

REACTIONS (14)
  - Headache [None]
  - Hot flush [None]
  - Irritability [None]
  - Painful defaecation [None]
  - Fatigue [None]
  - Somnolence [None]
  - Flushing [None]
  - Abdominal discomfort [None]
  - Sluggishness [None]
  - Anxiety [None]
  - Mental impairment [None]
  - Memory impairment [None]
  - Feeling abnormal [None]
  - Apathy [None]

NARRATIVE: CASE EVENT DATE: 201406
